FAERS Safety Report 23448141 (Version 1)
Quarter: 2024Q1

REPORT INFORMATION
  Report Type: Spontaneous
  Country: CZ (occurrence: CZ)
  Receive Date: 20240126
  Receipt Date: 20240126
  Transmission Date: 20240410
  Serious: Yes (Other)
  Sender: FDA-Public Use
  Company Number: CZ-002147023-NVSC2024CZ013876

PATIENT
  Age: 48 Year
  Sex: Male

DRUGS (10)
  1. TAFINLAR [Suspect]
     Active Substance: DABRAFENIB MESYLATE
     Indication: Malignant melanoma
     Dosage: UNK
     Route: 065
     Dates: start: 201708
  2. TAFINLAR [Suspect]
     Active Substance: DABRAFENIB MESYLATE
     Dosage: 75 MG, BID
     Route: 065
     Dates: end: 202107
  3. TAFINLAR [Suspect]
     Active Substance: DABRAFENIB MESYLATE
     Dosage: 75 MG, BID
     Route: 065
     Dates: start: 202108, end: 202209
  4. TAFINLAR [Suspect]
     Active Substance: DABRAFENIB MESYLATE
     Dosage: 75 MG, BID
     Route: 065
     Dates: end: 202212
  5. TAFINLAR [Suspect]
     Active Substance: DABRAFENIB MESYLATE
     Dosage: 75 MG, BID
     Route: 065
     Dates: end: 202302
  6. MEKINIST [Suspect]
     Active Substance: TRAMETINIB DIMETHYL SULFOXIDE
     Indication: Malignant melanoma
     Dosage: 2 G
     Route: 065
     Dates: start: 20180803
  7. MEKINIST [Suspect]
     Active Substance: TRAMETINIB DIMETHYL SULFOXIDE
     Dosage: 2 G, QD
     Route: 065
     Dates: end: 202107
  8. MEKINIST [Suspect]
     Active Substance: TRAMETINIB DIMETHYL SULFOXIDE
     Dosage: 2 G, QD
     Route: 065
     Dates: start: 202108, end: 202209
  9. MEKINIST [Suspect]
     Active Substance: TRAMETINIB DIMETHYL SULFOXIDE
     Dosage: 2 G, QD
     Route: 065
     Dates: end: 202212
  10. MEKINIST [Suspect]
     Active Substance: TRAMETINIB DIMETHYL SULFOXIDE
     Dosage: 2 G, QD
     Route: 065
     Dates: end: 202302

REACTIONS (26)
  - Transient ischaemic attack [Unknown]
  - Central nervous system lesion [Unknown]
  - Metastatic malignant melanoma [Unknown]
  - Malignant melanoma [Unknown]
  - Erysipelas [Not Recovered/Not Resolved]
  - Asthenia [Unknown]
  - Nausea [Recovered/Resolved]
  - Urticaria [Unknown]
  - Head discomfort [Unknown]
  - Asthenia [Unknown]
  - Scar [Unknown]
  - Gastrointestinal neoplasm [Not Recovered/Not Resolved]
  - Nodule [Unknown]
  - Body fat disorder [Unknown]
  - Hepatic lesion [Unknown]
  - Lymphadenitis [Unknown]
  - Hypersensitivity [Recovered/Resolved]
  - Urticaria [Recovered/Resolved]
  - Lip swelling [Recovered/Resolved]
  - Swelling face [Recovered/Resolved]
  - Skin swelling [Recovered/Resolved]
  - Muscle spasms [Unknown]
  - Phlebitis [Not Recovered/Not Resolved]
  - Lymphadenopathy [Unknown]
  - Chills [Recovered/Resolved]
  - Adrenomegaly [Not Recovered/Not Resolved]

NARRATIVE: CASE EVENT DATE: 20170101
